FAERS Safety Report 5648617-0 (Version None)
Quarter: 2008Q1

REPORT INFORMATION
  Report Type: 
  Country: None (occurrence: None)
  Receive Date: 20080303
  Receipt Date: 20080303
  Transmission Date: 20080703
  Serious: No
  Sender: FDA-Public Use
  Company Number: None

PATIENT
  Age: 87 Year
  Sex: Female

DRUGS (1)
  1. LISINOPRIL [Suspect]
     Dosage: 5MG QDAY PO 1 DOSE
     Route: 048
     Dates: start: 20080119, end: 20080119

REACTIONS (1)
  - LIP SWELLING [None]
